FAERS Safety Report 6111700-X (Version None)
Quarter: 2009Q1

REPORT INFORMATION
  Report Type: 
  Country: None (occurrence: None)
  Receive Date: 20090310
  Receipt Date: 20090310
  Transmission Date: 20090719
  Serious: No
  Sender: FDA-Public Use
  Company Number: None

PATIENT
  Age: 58 Year
  Sex: Male
  Weight: 82 kg

DRUGS (1)
  1. DAPTOMYCIN 500 MG [Suspect]
     Indication: ENDOCARDITIS STAPHYLOCOCCAL
     Dosage: 100 ML Q 24 IV
     Route: 042
     Dates: start: 20090304, end: 20090305

REACTIONS (1)
  - BLOOD CREATINE PHOSPHOKINASE INCREASED [None]
